FAERS Safety Report 18968906 (Version 1)
Quarter: 2021Q1

REPORT INFORMATION
  Report Type: Spontaneous
  Country: IT (occurrence: IT)
  Receive Date: 20210304
  Receipt Date: 20210304
  Transmission Date: 20210420
  Serious: Yes (Other)
  Sender: FDA-Public Use
  Company Number: IT-PFIZER INC-2021197474

PATIENT
  Age: 44 Year
  Sex: Male
  Weight: 70 kg

DRUGS (1)
  1. BASSADO [Suspect]
     Active Substance: DOXYCYCLINE
     Indication: HIDRADENITIS
     Dosage: 100 MG, 1X/DAY
     Route: 048
     Dates: start: 20201001, end: 20210115

REACTIONS (4)
  - Therapy non-responder [Not Recovered/Not Resolved]
  - Fistula [Not Recovered/Not Resolved]
  - Anal fistula [Not Recovered/Not Resolved]
  - Subcutaneous abscess [Not Recovered/Not Resolved]

NARRATIVE: CASE EVENT DATE: 20210128
